FAERS Safety Report 5526769-0 (Version None)
Quarter: 2007Q4

REPORT INFORMATION
  Report Type: 
  Country: None (occurrence: None)
  Receive Date: 20071127
  Receipt Date: 20071116
  Transmission Date: 20080405
  Serious: Yes (Other)
  Sender: FDA-Public Use
  Company Number: AT-ROCHE-532231

PATIENT
  Age: 27 Year
  Sex: Female
  Weight: 55 kg

DRUGS (4)
  1. CELLCEPT [Suspect]
     Indication: LUNG TRANSPLANT
     Route: 065
  2. TACROLIMUS [Suspect]
     Indication: LUNG TRANSPLANT
     Dosage: DRUG NAME REPORTED AS TACROLISMUS
     Route: 065
  3. PREDNISOLONE [Suspect]
     Indication: LUNG TRANSPLANT
     Dosage: DRUG NAME REPORTED AS APREDNISOLON
     Route: 065
  4. INSULIN [Suspect]
     Route: 065

REACTIONS (1)
  - PANNICULITIS [None]
